FAERS Safety Report 8796981 (Version 1)
Quarter: 2012Q4

REPORT INFORMATION
  Report Type: 
  Country: US (occurrence: US)
  Receive Date: 20120919
  Receipt Date: 20120919
  Transmission Date: 20130627
  Serious: Yes (Hospitalization)
  Sender: FDA-Public Use
  Company Number: US-GLAXOSMITHKLINE-A0775101A

PATIENT
  Sex: Male
  Weight: 98.6 kg

DRUGS (5)
  1. AVANDIA [Suspect]
     Indication: TYPE 2 DIABETES MELLITUS
     Dosage: 4MG Per day
     Route: 048
     Dates: start: 20000523, end: 2010
  2. VERAPAMIL [Concomitant]
  3. AMARYL [Concomitant]
  4. TRICOR [Concomitant]
  5. ZOCOR [Concomitant]

REACTIONS (5)
  - Cerebrovascular accident [Unknown]
  - Aphasia [Unknown]
  - Cardiac failure congestive [Unknown]
  - Aortic stenosis [Unknown]
  - Coronary artery disease [Unknown]
